FAERS Safety Report 8784565 (Version 1)
Quarter: 2012Q4

REPORT INFORMATION
  Report Type: Spontaneous
  Country: US (occurrence: None)
  Receive Date: 20120907
  Receipt Date: 20120907
  Transmission Date: 20130627
  Serious: Yes (Other)
  Sender: FDA-Public Use
  Company Number: None

PATIENT

DRUGS (3)
  1. TAMSULOSIN [Suspect]
     Indication: BPH
     Route: 048
     Dates: start: 20120604
  2. TAMSULOSIN [Suspect]
     Indication: PROSTATITIS
     Route: 048
     Dates: start: 20120604
  3. TRADJENTA [Suspect]
     Route: 048
     Dates: start: 20120604

REACTIONS (3)
  - Paranoia [None]
  - Confusional state [None]
  - Psychotic behaviour [None]
